FAERS Safety Report 4863548-1 (Version None)
Quarter: 2005Q4

REPORT INFORMATION
  Report Type: 
  Country: None (occurrence: None)
  Receive Date: 20051222
  Receipt Date: 20050419
  Transmission Date: 20060501
  Serious: No
  Sender: FDA-Public Use
  Company Number: US-GLAXOSMITHKLINE-A0554851A

PATIENT
  Age: 47 Year
  Sex: Female

DRUGS (2)
  1. FLONASE [Suspect]
     Indication: SEASONAL ALLERGY
     Dosage: 1SPR VARIABLE DOSE
     Route: 045
     Dates: start: 20020101
  2. ALBUTEROL [Concomitant]

REACTIONS (1)
  - DERMATITIS ATOPIC [None]
